FAERS Safety Report 8201024-9 (Version None)
Quarter: 2012Q1

REPORT INFORMATION
  Report Type: 
  Country: None (occurrence: None)
  Receive Date: 20120312
  Receipt Date: 20120307
  Transmission Date: 20120608
  Serious: Yes (Other)
  Sender: FDA-Public Use
  Company Number: CA-PFIZER INC-2012039167

PATIENT
  Age: 46 Year
  Sex: Female
  Weight: 86.168 kg

DRUGS (3)
  1. EFFEXOR [Suspect]
     Dosage: 150 MG, 1X/DAY
     Dates: start: 20020101
  2. VENLAFAXINE HCL [Suspect]
     Indication: SOCIAL PHOBIA
     Dosage: 150 MG, 1X/DAY
     Dates: start: 20110101
  3. EFFEXOR [Suspect]
     Indication: SOCIAL PHOBIA
     Dosage: 75 MG, 1X/DAY
     Dates: start: 20020101

REACTIONS (5)
  - CONTUSION [None]
  - THERAPEUTIC RESPONSE UNEXPECTED [None]
  - PAIN [None]
  - ROAD TRAFFIC ACCIDENT [None]
  - DIZZINESS [None]
